FAERS Safety Report 5186832-3 (Version None)
Quarter: 2006Q4

REPORT INFORMATION
  Report Type: 
  Country: None (occurrence: None)
  Receive Date: 20061213
  Receipt Date: 20061207
  Transmission Date: 20070319
  Serious: Yes (Death)
  Sender: FDA-Public Use
  Company Number: 23100360

PATIENT
  Age: 62 Year
  Sex: Female

DRUGS (15)
  1. ARGATROBAN [Suspect]
     Indication: HEPARIN-INDUCED THROMBOCYTOPENIA
     Dosage: 0.04 MCG/KG/MIN CONT IV
     Route: 042
     Dates: start: 20060808, end: 20060810
  2. ARGATROBAN [Suspect]
     Indication: HEPARIN-INDUCED THROMBOCYTOPENIA
     Dosage: 0.04 MCG/KG/MIN CONT IV
     Route: 042
     Dates: start: 20060813, end: 20060825
  3. MILRINONE [Concomitant]
  4. COUMADIN [Concomitant]
  5. AMIODARONE HCL [Concomitant]
  6. ASPIRIN [Concomitant]
  7. BUMEX [Concomitant]
  8. RISPERDAL [Concomitant]
  9. DUONEB [Concomitant]
  10. IRON [Concomitant]
  11. METOLOZONE [Concomitant]
  12. PROTONIX [Concomitant]
  13. ZOCIN [Concomitant]
  14. PRIMACORE [Concomitant]
  15. VANCOMYCIN [Concomitant]

REACTIONS (3)
  - ACTIVATED PARTIAL THROMBOPLASTIN TIME PROLONGED [None]
  - HEPATIC CONGESTION [None]
  - INTERNATIONAL NORMALISED RATIO INCREASED [None]
